FAERS Safety Report 9515098 (Version 1)
Quarter: 2013Q1

REPORT INFORMATION
  Report Type: Spontaneous
  Country: US (occurrence: None)
  Receive Date: 20130305
  Receipt Date: 20130305
  Transmission Date: 20140127
  Serious: Yes (Disabling)
  Sender: FDA-Public Use
  Company Number: 163-21880-12043064

PATIENT
  Age: 66 Year
  Sex: Male
  Weight: 86.64 kg

DRUGS (8)
  1. REVLIMID [Suspect]
     Indication: PLASMA CELL MYELOMA
     Dosage: 15 MG, 1 IN 1 D, PO?
     Route: 048
     Dates: start: 200901, end: 201204
  2. GRANISETRON (GRANISETRON) (UNKNOWN)? [Concomitant]
  3. HYDROMORPHONE (HYDROMORPHONE) (UNKNOWN) (HYDROMORPHONE) [Concomitant]
  4. KLOR-CON (POTASSIUM CHLORIDE) (UNKNOWN) [Concomitant]
  5. METHADONE (METHADONE) (UNKNOWN) (METHADONE) [Concomitant]
  6. SOMA (CARISOPRODOL) (UNKNOWN) [Concomitant]
  7. VALTREX (VALACICLOVIR HYDROCHLORIDE) (UNKNOWN)? [Concomitant]
  8. WARFARIN (WARFARIN) (UNKNOWN) [Concomitant]

REACTIONS (1)
  - Plasma cell myeloma [None]
